FAERS Safety Report 21852489 (Version 1)
Quarter: 2023Q1

REPORT INFORMATION
  Report Type: Spontaneous
  Country: US (occurrence: None)
  Receive Date: 20230112
  Receipt Date: 20230112
  Transmission Date: 20230418
  Serious: Yes (Hospitalization)
  Sender: FDA-Public Use
  Company Number: US-ROCHE-3259290

PATIENT
  Sex: Female
  Weight: 72.640 kg

DRUGS (3)
  1. TAMIFLU [Suspect]
     Active Substance: OSELTAMIVIR PHOSPHATE
     Indication: Influenza
     Dosage: ONGOING: NO
     Route: 048
     Dates: start: 20230103, end: 20230105
  2. CLOPIDOGREL [Concomitant]
     Active Substance: CLOPIDOGREL BISULFATE
     Dosage: UNKNOWN
     Route: 048
  3. LISINOPRIL [Concomitant]
     Active Substance: LISINOPRIL
     Indication: Anticoagulant therapy
     Dosage: UNKNOWN
     Route: 048

REACTIONS (9)
  - Swelling [Recovering/Resolving]
  - Skin discolouration [Recovering/Resolving]
  - Contusion [Unknown]
  - Dyspnoea [Recovered/Resolved]
  - Urinary tract infection [Unknown]
  - Hepatic mass [Not Recovered/Not Resolved]
  - Haematochezia [Unknown]
  - Rash [Recovering/Resolving]
  - Liver disorder [Unknown]

NARRATIVE: CASE EVENT DATE: 20230103
